FAERS Safety Report 15185474 (Version 1)
Quarter: 2018Q3

REPORT INFORMATION
  Report Type: Spontaneous
  Country: ES (occurrence: ES)
  Receive Date: 20180723
  Receipt Date: 20180723
  Transmission Date: 20181010
  Serious: Yes (Life-Threatening, Hospitalization, Other)
  Sender: FDA-Public Use
  Company Number: ES-SHIRE-ES201827047

PATIENT

DRUGS (1)
  1. ONCASPAR [Suspect]
     Active Substance: PEGASPARGASE
     Indication: ACUTE BIPHENOTYPIC LEUKAEMIA
     Dosage: UNK, 1X/DAY:QD
     Route: 040
     Dates: start: 20180423

REACTIONS (4)
  - Cholestasis [Recovering/Resolving]
  - Hyperbilirubinaemia [Recovered/Resolved]
  - Acute hepatic failure [Recovered/Resolved]
  - Hypertransaminasaemia [Recovering/Resolving]

NARRATIVE: CASE EVENT DATE: 20180423
